FAERS Safety Report 6617533-X (Version None)
Quarter: 2010Q1

REPORT INFORMATION
  Report Type: 
  Country: None (occurrence: None)
  Receive Date: 20100308
  Receipt Date: 20100226
  Transmission Date: 20100710
  Serious: Yes (Hospitalization)
  Sender: FDA-Public Use
  Company Number: DE-MPIJNJ-2010-01454

PATIENT

DRUGS (3)
  1. VELCADE [Suspect]
     Indication: MULTIPLE MYELOMA
     Dosage: 1.3 MG/M2, UNK
  2. DOXORUBICIN [Suspect]
     Indication: MULTIPLE MYELOMA
     Dosage: 9 MG/M2, UNK
  3. DEXAMETHASONE [Suspect]
     Indication: MULTIPLE MYELOMA
     Dosage: 40 MG, UNK

REACTIONS (3)
  - ABDOMINAL PAIN UPPER [None]
  - HICCUPS [None]
  - PNEUMONIA [None]
